FAERS Safety Report 18117833 (Version 3)
Quarter: 2020Q4

REPORT INFORMATION
  Report Type: Spontaneous
  Country: US (occurrence: US)
  Receive Date: 20200806
  Receipt Date: 20201002
  Transmission Date: 20210113
  Serious: No
  Sender: FDA-Public Use
  Company Number: US-ASTRAZENECA-2020SE96304

PATIENT
  Age: 25606 Day
  Sex: Female
  Weight: 54.4 kg

DRUGS (1)
  1. BYDUREON BCISE [Suspect]
     Active Substance: EXENATIDE
     Indication: TYPE 2 DIABETES MELLITUS
     Route: 058
     Dates: start: 202002

REACTIONS (7)
  - Wrong technique in device usage process [Unknown]
  - Injection site pain [Unknown]
  - Needle track marks [Unknown]
  - Incorrect dose administered by product [Unknown]
  - Intentional product misuse [Unknown]
  - Injection site mass [Not Recovered/Not Resolved]
  - Device leakage [Unknown]

NARRATIVE: CASE EVENT DATE: 20200726
